FAERS Safety Report 25617977 (Version 1)
Quarter: 2025Q3

REPORT INFORMATION
  Report Type: Spontaneous
  Country: CN (occurrence: CN)
  Receive Date: 20250729
  Receipt Date: 20250729
  Transmission Date: 20251021
  Serious: Yes (Hospitalization, Other)
  Sender: GLAND PHARMA LTD
  Company Number: CN-GLANDPHARMA-CN-2025GLNLIT01623

PATIENT
  Age: 66 Year
  Sex: Male

DRUGS (12)
  1. POLYMYXIN B [Suspect]
     Active Substance: POLYMYXIN B
     Indication: Meningitis bacterial
     Route: 065
  2. POLYMYXIN B [Suspect]
     Active Substance: POLYMYXIN B
     Indication: Meningitis bacterial
  3. POLYMYXIN B [Suspect]
     Active Substance: POLYMYXIN B
     Indication: Pathogen resistance
     Route: 042
  4. TIGECYCLINE [Concomitant]
     Active Substance: TIGECYCLINE
     Indication: Anti-infective therapy
     Route: 042
  5. CEFOPERAZONE\SULBACTAM [Concomitant]
     Active Substance: CEFOPERAZONE\SULBACTAM
     Route: 042
  6. CEFOPERAZONE\SULBACTAM [Concomitant]
     Active Substance: CEFOPERAZONE\SULBACTAM
     Route: 065
  7. AMIKACIN [Concomitant]
     Active Substance: AMIKACIN
     Indication: Anti-infective therapy
     Route: 037
  8. SULBACTAM [Concomitant]
     Active Substance: SULBACTAM
     Route: 042
  9. SULBACTAM [Concomitant]
     Active Substance: SULBACTAM
     Route: 065
  10. SULBACTAM [Concomitant]
     Active Substance: SULBACTAM
     Route: 065
  11. CEFIDEROCOL [Concomitant]
     Active Substance: CEFIDEROCOL
     Route: 065
  12. CEFIDEROCOL [Concomitant]
     Active Substance: CEFIDEROCOL
     Route: 065

REACTIONS (2)
  - Renal failure [Unknown]
  - Product use in unapproved indication [Unknown]
